FAERS Safety Report 8409628-5 (Version None)
Quarter: 2012Q2

REPORT INFORMATION
  Report Type: 
  Country: None (occurrence: None)
  Receive Date: 20120605
  Receipt Date: 20120523
  Transmission Date: 20120825
  Serious: No
  Sender: FDA-Public Use
  Company Number: US-B.I. PHARMACEUTICALS,INC./RIDGEFIELD-2012-BP-11498BP

PATIENT
  Sex: Male

DRUGS (5)
  1. TOPROL-XL [Concomitant]
     Indication: ATRIAL FIBRILLATION
  2. ENALAPRIL MALEATE [Concomitant]
     Indication: HYPERTENSION
  3. PRADAXA [Suspect]
     Indication: ATRIAL FIBRILLATION
     Dosage: 300 MG
     Route: 048
     Dates: start: 20120514
  4. ZOCOR [Concomitant]
     Indication: BLOOD CHOLESTEROL ABNORMAL
  5. TOPROL-XL [Concomitant]
     Indication: HYPERTENSION

REACTIONS (3)
  - OROPHARYNGEAL PAIN [None]
  - BACK PAIN [None]
  - ODYNOPHAGIA [None]
